FAERS Safety Report 7074508-7 (Version None)
Quarter: 2010Q4

REPORT INFORMATION
  Report Type: 
  Country: None (occurrence: None)
  Receive Date: 20101029
  Receipt Date: 20101027
  Transmission Date: 20110411
  Serious: Yes (Death, Hospitalization)
  Sender: FDA-Public Use
  Company Number: PHHY2010MX41865

PATIENT
  Sex: Female

DRUGS (2)
  1. ACLASTA [Suspect]
     Dosage: 5MG
     Route: 042
  2. ENBREL [Concomitant]
     Dosage: UNK

REACTIONS (3)
  - INFLUENZA [None]
  - PNEUMONIA [None]
  - RESPIRATORY FAILURE [None]
